FAERS Safety Report 19794225 (Version 4)
Quarter: 2021Q4

REPORT INFORMATION
  Report Type: Spontaneous
  Country: US (occurrence: US)
  Receive Date: 20210907
  Receipt Date: 20211108
  Transmission Date: 20220303
  Serious: Yes (Other)
  Sender: FDA-Public Use
  Company Number: US-SANOFI-00752393

PATIENT
  Age: 74 Year
  Sex: Female
  Weight: 103 kg

DRUGS (2)
  1. LANTUS SOLOSTAR [Suspect]
     Active Substance: INSULIN GLARGINE
     Indication: Type 2 diabetes mellitus
     Dosage: 19 IU, HS (AT DINNER)
     Route: 065
  2. INSULIN LISPRO [Concomitant]
     Active Substance: INSULIN LISPRO
     Indication: Type 2 diabetes mellitus
     Dosage: 15 IU, UNK
     Route: 065

REACTIONS (4)
  - Pancreatic failure [Unknown]
  - Diabetes mellitus inadequate control [Recovering/Resolving]
  - Incorrect dose administered by device [Recovering/Resolving]
  - Device delivery system issue [Recovering/Resolving]
